FAERS Safety Report 17443793 (Version 2)
Quarter: 2020Q1

REPORT INFORMATION
  Report Type: Spontaneous
  Country: US (occurrence: US)
  Receive Date: 20200221
  Receipt Date: 20200324
  Transmission Date: 20200409
  Serious: Yes (Other)
  Sender: FDA-Public Use
  Company Number: US-DRREDDYS-USA/USA/20/0119992

PATIENT
  Age: 70 Year
  Sex: Male

DRUGS (11)
  1. DILTIAZEM HYDROCHLORIDE. [Concomitant]
     Active Substance: DILTIAZEM HYDROCHLORIDE
     Indication: ATRIAL FIBRILLATION
  2. COUMADIN [Concomitant]
     Active Substance: WARFARIN SODIUM
     Indication: PRODUCT USED FOR UNKNOWN INDICATION
  3. ATORVASTATIN [Concomitant]
     Active Substance: ATORVASTATIN
     Indication: HYPERLIPIDAEMIA
  4. VALGANCICLOVIR TABLETS [Suspect]
     Active Substance: VALGANCICLOVIR
     Indication: HERPES ZOSTER MENINGOENCEPHALITIS
     Dosage: INDUCTION DOSING
     Route: 048
  5. DORZOLAMIDE/TIMOLOL [Concomitant]
     Active Substance: DORZOLAMIDE\TIMOLOL
     Indication: IRITIS
     Route: 061
  6. PREDNISOLONE. [Concomitant]
     Active Substance: PREDNISOLONE
     Indication: IRITIS
     Route: 061
  7. PREDNISOLONE. [Concomitant]
     Active Substance: PREDNISOLONE
     Indication: VITRITIS
  8. DORZOLAMIDE/TIMOLOL [Concomitant]
     Active Substance: DORZOLAMIDE\TIMOLOL
     Indication: VITRITIS
  9. VALGANCICLOVIR TABLETS [Suspect]
     Active Substance: VALGANCICLOVIR
     Indication: NECROTISING RETINITIS
  10. BRIMONIDINE [Concomitant]
     Active Substance: BRIMONIDINE TARTRATE
     Indication: IRITIS
  11. BRIMONIDINE [Concomitant]
     Active Substance: BRIMONIDINE TARTRATE
     Indication: VITRITIS
     Route: 061

REACTIONS (2)
  - Bone marrow failure [Recovered/Resolved]
  - Anaemia [Recovered/Resolved]
